FAERS Safety Report 6445866-9 (Version None)
Quarter: 2009Q4

REPORT INFORMATION
  Report Type: 
  Country: None (occurrence: None)
  Receive Date: 20091119
  Receipt Date: 20091110
  Transmission Date: 20100525
  Serious: Yes (Death, Hospitalization, Other)
  Sender: FDA-Public Use
  Company Number: BR-BAYER-BR-2007-003113

PATIENT
  Age: 46 Year
  Sex: Female

DRUGS (4)
  1. BETAFERON [Suspect]
     Indication: SECONDARY PROGRESSIVE MULTIPLE SCLEROSIS
     Dosage: UNIT DOSE: 9.6 MIU
     Route: 058
     Dates: start: 20020901
  2. BETAFERON [Suspect]
     Dosage: TOTAL DAILY DOSE: 9.6 MIU
     Route: 058
     Dates: start: 20030901, end: 20091011
  3. RIVOTRIL [Concomitant]
     Indication: DEPRESSION
     Route: 048
     Dates: start: 20030101, end: 20030101
  4. PORFANIL/TIAPRIDE [Concomitant]
     Indication: DEPRESSION
     Dosage: TOTAL DAILY DOSE: 1 DF
     Route: 048
     Dates: start: 20030101, end: 20091011

REACTIONS (11)
  - APHONIA [None]
  - BLOOD PRESSURE FLUCTUATION [None]
  - CARDIAC DISORDER [None]
  - DIPLOPIA [None]
  - GASTROINTESTINAL DISORDER [None]
  - LUNG DISORDER [None]
  - PNEUMONIA [None]
  - RESPIRATORY DISORDER [None]
  - SPEECH DISORDER [None]
  - URINARY INCONTINENCE [None]
  - VISUAL IMPAIRMENT [None]
